FAERS Safety Report 5028646-0 (Version None)
Quarter: 2006Q2

REPORT INFORMATION
  Report Type: 
  Country: None (occurrence: None)
  Receive Date: 20060619
  Receipt Date: 20060606
  Transmission Date: 20061013
  Serious: Yes (Hospitalization)
  Sender: FDA-Public Use
  Company Number: 2006SE03199

PATIENT
  Age: 27993 Day
  Sex: Female

DRUGS (7)
  1. ESOMEPRAZOLE [Suspect]
     Indication: PEPTIC ULCER HAEMORRHAGE
     Route: 042
     Dates: start: 20060530, end: 20060530
  2. ESOMEPRAZOLE [Suspect]
     Route: 042
     Dates: start: 20060530, end: 20060602
  3. ESOMEPRAZOLE [Suspect]
     Route: 048
     Dates: start: 20060602
  4. TORSEMIDE [Concomitant]
     Indication: DIURETIC THERAPY
     Route: 048
  5. TRAMAL LONG [Concomitant]
     Indication: ANALGESIC THERAPY
     Route: 048
  6. PREDNISOLONE [Concomitant]
     Route: 048
  7. RAMIPRIL [Concomitant]
     Indication: HYPERTENSION
     Route: 048

REACTIONS (1)
  - DUODENAL ULCER HAEMORRHAGE [None]
